FAERS Safety Report 5614199-2 (Version None)
Quarter: 2008Q1

REPORT INFORMATION
  Report Type: 
  Country: None (occurrence: None)
  Receive Date: 20080205
  Receipt Date: 20080124
  Transmission Date: 20080703
  Serious: Yes (Other)
  Sender: FDA-Public Use
  Company Number: US-PFIZER INC-2008007522

PATIENT
  Age: 22 Year
  Sex: Male

DRUGS (1)
  1. GEODON [Suspect]
     Dosage: DAILY DOSE:160MG

REACTIONS (1)
  - CORNEAL EROSION [None]
